FAERS Safety Report 4684077-4 (Version None)
Quarter: 2005Q2

REPORT INFORMATION
  Report Type: 
  Country: None (occurrence: None)
  Receive Date: 20050607
  Receipt Date: 20050601
  Transmission Date: 20051028
  Serious: Yes (Other)
  Sender: FDA-Public Use
  Company Number: PHEH2005US06214

PATIENT
  Age: 56 Year
  Sex: Female

DRUGS (2)
  1. DIOVAN [Suspect]
     Indication: HYPERTENSION
     Dosage: 80 MG, QD
     Route: 048
     Dates: start: 20040101
  2. COUMADIN [Concomitant]

REACTIONS (3)
  - BREAST CANCER FEMALE [None]
  - COUGH [None]
  - DRY THROAT [None]
